FAERS Safety Report 9366876 (Version 2)
Quarter: 2013Q4

REPORT INFORMATION
  Report Type: Spontaneous
  Country: US (occurrence: US)
  Receive Date: 20130625
  Receipt Date: 20131108
  Transmission Date: 20140711
  Serious: Yes (Hospitalization, Disabling, Other)
  Sender: FDA-Public Use
  Company Number: US-GLAXOSMITHKLINE-A1027840A

PATIENT
  Age: 22 Year
  Sex: Female

DRUGS (2)
  1. PROMACTA [Suspect]
     Indication: IMMUNE THROMBOCYTOPENIC PURPURA
     Route: 065
     Dates: start: 201306
  2. BIRTH CONTROL PILLS [Suspect]

REACTIONS (3)
  - Transverse sinus thrombosis [Recovering/Resolving]
  - Superior sagittal sinus thrombosis [Recovering/Resolving]
  - Headache [Recovering/Resolving]
